FAERS Safety Report 18966052 (Version 2)
Quarter: 2021Q3

REPORT INFORMATION
  Report Type: Report from Study
  Country: CA (occurrence: CA)
  Receive Date: 20210303
  Receipt Date: 20210723
  Transmission Date: 20211014
  Serious: Yes (Other)
  Sender: FDA-Public Use
  Company Number: CA-SHIRE-CA201938788AA

PATIENT
  Age: 37 Year
  Sex: Male

DRUGS (4)
  1. CUVITRU [Suspect]
     Active Substance: HUMAN IMMUNOGLOBULIN G
     Indication: PRIMARY IMMUNODEFICIENCY SYNDROME
     Dosage: 12 GRAM, 1/WEEK
     Route: 065
     Dates: start: 20180417
  2. CUVITRU [Suspect]
     Active Substance: HUMAN IMMUNOGLOBULIN G
     Dosage: 30 MILLILITER, WEEKLY
     Route: 058
     Dates: start: 20210117
  3. CUVITRU [Suspect]
     Active Substance: HUMAN IMMUNOGLOBULIN G
     Dosage: 12 GRAM, 1X/WEEK
     Route: 058
     Dates: start: 20180417
  4. IMMUNOGLOBULIN I.V [Concomitant]
     Active Substance: HUMAN IMMUNOGLOBULIN G
     Indication: PRODUCT USED FOR UNKNOWN INDICATION

REACTIONS (8)
  - Flatulence [Unknown]
  - Headache [Unknown]
  - Lower respiratory tract infection [Not Recovered/Not Resolved]
  - Diarrhoea [Unknown]
  - Fatigue [Unknown]
  - Infusion site pain [Unknown]
  - Arthralgia [Unknown]
  - Pyrexia [Unknown]

NARRATIVE: CASE EVENT DATE: 20210222
